FAERS Safety Report 8454175-8 (Version None)
Quarter: 2012Q2

REPORT INFORMATION
  Report Type: 
  Country: None (occurrence: None)
  Receive Date: 20120620
  Receipt Date: 20120612
  Transmission Date: 20120825
  Serious: Yes (Other)
  Sender: FDA-Public Use
  Company Number: GB-B.I. PHARMACEUTICALS,INC./RIDGEFIELD-2012-UK-00772UK

PATIENT
  Age: 65 Year
  Sex: Male
  Weight: 108 kg

DRUGS (4)
  1. PRADAXA [Suspect]
     Indication: ATRIAL FIBRILLATION
     Dosage: 150 MG
     Route: 048
     Dates: start: 20120520, end: 20120523
  2. AMLODIPINE [Concomitant]
     Indication: HYPERTENSION
     Dosage: 5 MG
     Route: 048
     Dates: start: 20120511
  3. BISOPROLOL FUMARATE [Concomitant]
     Indication: ATRIAL FIBRILLATION
     Dosage: 2.5 MG
     Route: 048
     Dates: start: 20120516
  4. LYMECYCLINE [Concomitant]
     Indication: ROSACEA
     Dosage: 480 MG
     Route: 048
     Dates: start: 20120416

REACTIONS (2)
  - CHEST PAIN [None]
  - OESOPHAGITIS [None]
